FAERS Safety Report 5363177-X (Version None)
Quarter: 2007Q2

REPORT INFORMATION
  Report Type: 
  Country: None (occurrence: None)
  Receive Date: 20070620
  Receipt Date: 20070614
  Transmission Date: 20071010
  Serious: Yes (Death)
  Sender: FDA-Public Use
  Company Number: PHBS2007JP08201

PATIENT
  Age: 70 Year
  Sex: Female
  Weight: 32 kg

DRUGS (2)
  1. FEMARA [Suspect]
     Indication: BREAST CANCER
     Dosage: 2.5 MG/D
     Route: 048
     Dates: start: 20070411, end: 20070512
  2. NOLVADEX [Concomitant]

REACTIONS (1)
  - LUNG DISORDER [None]
